FAERS Safety Report 4301020-8 (Version None)
Quarter: 2004Q1

REPORT INFORMATION
  Report Type: 
  Country: None (occurrence: None)
  Receive Date: 20040219
  Receipt Date: 20040204
  Transmission Date: 20041129
  Serious: Yes (Other)
  Sender: FDA-Public Use
  Company Number: 2004IM000299

PATIENT
  Age: 52 Year
  Sex: Male

DRUGS (3)
  1. ADVAFERON (A643_INTERFERON ALFACON-1) [Suspect]
     Indication: HEPATITIS C
     Dosage: 18 MU;QD; SUBCUTANEOUS
     Route: 058
     Dates: start: 20020513, end: 20020726
  2. REBAMIPIDE [Concomitant]
  3. FAMOTIDINE [Concomitant]

REACTIONS (5)
  - BACK PAIN [None]
  - INTERSTITIAL LUNG DISEASE [None]
  - PLATELET COUNT DECREASED [None]
  - PYREXIA [None]
  - WHITE BLOOD CELL COUNT DECREASED [None]
